FAERS Safety Report 7227917-7 (Version None)
Quarter: 2011Q1

REPORT INFORMATION
  Report Type: 
  Country: None (occurrence: None)
  Receive Date: 20110111
  Receipt Date: 20110111
  Transmission Date: 20110831
  Serious: Yes (Other)
  Sender: FDA-Public Use
  Company Number: None

PATIENT
  Age: 41 Year
  Sex: Female

DRUGS (1)
  1. TRUVADA [Suspect]
     Indication: INJURY ASSOCIATED WITH DEVICE
     Dosage: 1 TAB ONCE PO
     Route: 048
     Dates: start: 20101223, end: 20101223

REACTIONS (3)
  - NO THERAPEUTIC RESPONSE [None]
  - PROCTALGIA [None]
  - GENITAL PAIN [None]
